FAERS Safety Report 4457139-4 (Version None)
Quarter: 2004Q3

REPORT INFORMATION
  Report Type: 
  Country: None (occurrence: None)
  Receive Date: 20040825
  Receipt Date: 20040520
  Transmission Date: 20050211
  Serious: No
  Sender: FDA-Public Use
  Company Number: 206716

PATIENT
  Sex: Male

DRUGS (8)
  1. RAPTIVA [Suspect]
     Indication: PSORIASIS
     Dosage: 125 MG 1/WEEK SUBCUTANEOUS
     Route: 058
     Dates: start: 20040325
  2. INSULIN [Concomitant]
  3. ACCUPRIL [Concomitant]
  4. ACTOS [Concomitant]
  5. HYDROCHLOROTHIAZIDE [Concomitant]
  6. ALLOPURINOL [Concomitant]
  7. PROSCAR [Concomitant]
  8. ZOLOFT [Concomitant]

REACTIONS (1)
  - BLOOD GLUCOSE INCREASED [None]
